FAERS Safety Report 25790093 (Version 1)
Quarter: 2025Q3

REPORT INFORMATION
  Report Type: Spontaneous
  Country: US (occurrence: US)
  Receive Date: 20250911
  Receipt Date: 20250911
  Transmission Date: 20251020
  Serious: Yes (Other)
  Sender: MDD OPERATIONS
  Company Number: US-SUP-SUP202509-003458

PATIENT
  Sex: Female

DRUGS (3)
  1. QELBREE [Suspect]
     Active Substance: VILOXAZINE HYDROCHLORIDE
     Indication: Attention deficit hyperactivity disorder
  2. QELBREE [Suspect]
     Active Substance: VILOXAZINE HYDROCHLORIDE
  3. QELBREE [Suspect]
     Active Substance: VILOXAZINE HYDROCHLORIDE

REACTIONS (6)
  - Withdrawal syndrome [Unknown]
  - Migraine [Unknown]
  - Fatigue [Unknown]
  - Insomnia [Unknown]
  - Influenza like illness [Unknown]
  - Drug ineffective [Unknown]
